FAERS Safety Report 20731675 (Version 1)
Quarter: 2022Q2

REPORT INFORMATION
  Report Type: Spontaneous
  Country: US (occurrence: None)
  Receive Date: 20220420
  Receipt Date: 20220420
  Transmission Date: 20220721
  Serious: Yes (Other)
  Sender: FDA-Public Use
  Company Number: None

PATIENT
  Age: 43 Year
  Sex: Male
  Weight: 85.5 kg

DRUGS (1)
  1. DEXTROAMPHET SACCHARAT, AMPHET ASPARTATE, DEXTROAMPHET SULFATE AND AMP [Suspect]
     Active Substance: AMPHETAMINE ASPARTATE\AMPHETAMINE SULFATE\DEXTROAMPHETAMINE SACCHARATE\DEXTROAMPHETAMINE SULFATE
     Dosage: FREQUENCY : TWICE A DAY;?
     Route: 048
     Dates: start: 19970301, end: 20220308

REACTIONS (12)
  - Product substitution issue [None]
  - Nausea [None]
  - Insomnia [None]
  - Depression [None]
  - Disturbance in attention [None]
  - Delusion [None]
  - Hallucination [None]
  - Withdrawal syndrome [None]
  - Heart rate increased [None]
  - Syncope [None]
  - Suspected product quality issue [None]
  - Vomiting [None]

NARRATIVE: CASE EVENT DATE: 20220401
